FAERS Safety Report 7447750-0 (Version None)
Quarter: 2011Q2

REPORT INFORMATION
  Report Type: 
  Country: None (occurrence: None)
  Receive Date: 20110429
  Receipt Date: 20100728
  Transmission Date: 20111010
  Serious: No
  Sender: FDA-Public Use
  Company Number: US-ASTRAZENECA-2010SE35362

PATIENT
  Age: 607 Month
  Sex: Male
  Weight: 77.1 kg

DRUGS (5)
  1. NEXIUM [Suspect]
     Route: 048
  2. ASPIRIN [Concomitant]
  3. CRESTOR [Suspect]
     Indication: BLOOD CHOLESTEROL INCREASED
     Route: 048
     Dates: start: 20040101
  4. FISH OIL [Concomitant]
  5. RANITIDINE [Concomitant]

REACTIONS (4)
  - NOCTURIA [None]
  - BACK PAIN [None]
  - AVERSION [None]
  - ARTHRALGIA [None]
